FAERS Safety Report 11878352 (Version 3)
Quarter: 2016Q1

REPORT INFORMATION
  Report Type: Report from Study
  Country: US (occurrence: US)
  Receive Date: 20151230
  Receipt Date: 20160321
  Transmission Date: 20160526
  Serious: Yes (Hospitalization)
  Sender: FDA-Public Use
  Company Number: US-WATSON-2015-22974

PATIENT
  Age: 82 Year
  Sex: Male
  Weight: 72 kg

DRUGS (45)
  1. NORCO [Concomitant]
     Active Substance: ACETAMINOPHEN\HYDROCODONE BITARTRATE
     Indication: OSTEOARTHRITIS
     Dosage: UNK UNK, UNKNOWN
     Route: 065
     Dates: start: 201503
  2. PRESERVISION [Concomitant]
     Active Substance: MINERALS\VITAMINS
     Indication: AGE-RELATED MACULAR DEGENERATION
     Dosage: UNK UNK, UNKNOWN
     Route: 065
     Dates: start: 201411
  3. MAGNESIUM [Concomitant]
     Active Substance: MAGNESIUM
     Indication: SUPPLEMENTATION THERAPY
     Dosage: UNK UNK, UNKNOWN
     Route: 065
     Dates: start: 2010
  4. IBUPROFEN (WATSON LABORATORIES) [Suspect]
     Active Substance: IBUPROFEN
     Indication: OSTEOARTHRITIS
     Dosage: 600 MG, AS NEEDED
     Route: 048
     Dates: start: 20121201, end: 20150608
  5. LORTAB [Concomitant]
     Active Substance: ACETAMINOPHEN\HYDROCODONE BITARTRATE
     Indication: OSTEOARTHRITIS
     Dosage: UNKNOWN
     Route: 065
     Dates: start: 20110727
  6. DILTIAZEM [Concomitant]
     Active Substance: DILTIAZEM
     Indication: PALPITATIONS
     Dosage: UNKNOWN
     Route: 065
     Dates: start: 20110913, end: 20150608
  7. DILTIAZEM [Concomitant]
     Active Substance: DILTIAZEM
     Dosage: UNKNOWN
     Route: 065
     Dates: start: 20150610, end: 20150612
  8. OMEGA-3                            /01866101/ [Concomitant]
     Active Substance: OMEGA-3 FATTY ACIDS
     Indication: SUPPLEMENTATION THERAPY
     Dosage: UNK UNK, UNKNOWN
     Route: 065
     Dates: start: 201010
  9. TAMSULOSIN [Concomitant]
     Active Substance: TAMSULOSIN
     Indication: HYPERTENSION
  10. AMIODARONE [Concomitant]
     Active Substance: AMIODARONE
     Indication: SUPRAVENTRICULAR TACHYCARDIA
     Dosage: UNK UNK, UNKNOWN
     Route: 065
     Dates: start: 20150508, end: 201507
  11. ANESTHETICS, LOCAL [Concomitant]
     Active Substance: UNSPECIFIED INGREDIENT
     Indication: BACK PAIN
     Dosage: UNKNOWN
     Dates: start: 20151114, end: 20151114
  12. GLUCOSAMINE CHONDROITIN            /01430901/ [Concomitant]
     Indication: OSTEOARTHRITIS
     Dosage: UNK UNK, UNKNOWN
     Route: 065
     Dates: start: 2010
  13. ASPIRIN. [Suspect]
     Active Substance: ASPIRIN
     Indication: PROPHYLAXIS
     Dosage: 81 MG, DAILY
     Route: 048
     Dates: start: 20000207, end: 20150608
  14. NEXIUM [Concomitant]
     Active Substance: ESOMEPRAZOLE MAGNESIUM
     Indication: PRODUCT USED FOR UNKNOWN INDICATION
     Dosage: UNKNOWN
     Route: 065
     Dates: start: 20121002, end: 20121025
  15. CYMBALTA [Concomitant]
     Active Substance: DULOXETINE HYDROCHLORIDE
     Indication: OSTEOARTHRITIS
     Dosage: UNK UNK, UNKNOWN
     Route: 065
     Dates: start: 20140605
  16. IRON [Concomitant]
     Active Substance: IRON
     Indication: SUPPLEMENTATION THERAPY
     Dosage: UNK, PRN
     Route: 065
     Dates: start: 201404, end: 20150607
  17. ANESTHETICS, LOCAL [Concomitant]
     Active Substance: UNSPECIFIED INGREDIENT
     Dosage: UNK
     Dates: start: 20151210, end: 20151210
  18. SUPER B COMPLEX                    /01995301/ [Concomitant]
     Active Substance: CYANOCOBALAMIN\DEXPANTHENOL\NIACINAMIDE\PYRIDOXINE HYDROCHLORIDE\RIBOFLAVIN 5^-PHOSPHATE SODIUM\THIAMINE HYDROCHLORIDE\VITAMIN B COMPLEX
     Indication: SUPPLEMENTATION THERAPY
     Dosage: UNK UNK, UNKNOWN
     Route: 065
     Dates: start: 2010
  19. PREDNISONE (WATSON LABORATORIES) [Suspect]
     Active Substance: PREDNISONE
     Indication: OSTEOARTHRITIS
     Dosage: 5 MG TWICE DAILY
     Route: 048
     Dates: start: 20150316, end: 20150608
  20. MELOXICAM. [Suspect]
     Active Substance: MELOXICAM
     Indication: OSTEOARTHRITIS
     Dosage: 15 MG DAILY
     Route: 048
     Dates: start: 20150313, end: 20150608
  21. TAMSULOSIN [Concomitant]
     Active Substance: TAMSULOSIN
     Indication: BENIGN PROSTATIC HYPERPLASIA
     Dosage: UNK UNK, UNKNOWN
     Route: 065
     Dates: start: 20131003
  22. DICLOFENAC [Concomitant]
     Active Substance: DICLOFENAC
     Indication: OSTEOARTHRITIS
     Dosage: 10 %, UNKNOWN
     Route: 061
     Dates: start: 20141007
  23. SOOTHE                             /00256502/ [Concomitant]
     Active Substance: TETRAHYDROZOLINE HYDROCHLORIDE
     Indication: DRY EYE
     Dosage: UNK UNK, UNKNOWN
     Route: 047
     Dates: start: 201408
  24. VITAMIN D3 [Concomitant]
     Active Substance: CHOLECALCIFEROL
     Indication: SUPPLEMENTATION THERAPY
     Dosage: UNK UNK, UNKNOWN
     Route: 065
     Dates: start: 2010
  25. ACYCLOVIR                          /00587301/ [Concomitant]
     Active Substance: ACYCLOVIR
     Indication: HERPES ZOSTER
     Dosage: UNK UNK, UNKNOWN
     Route: 065
     Dates: start: 1996
  26. CARVEDILOL. [Concomitant]
     Active Substance: CARVEDILOL
     Indication: HYPERTENSION
  27. SAW PALMETTO                       /00833501/ [Concomitant]
     Active Substance: SAW PALMETTO
     Indication: BENIGN PROSTATIC HYPERPLASIA
     Dosage: UNK UNK, UNKNOWN
     Route: 065
     Dates: start: 201412
  28. SPIRONOLACTONE. [Concomitant]
     Active Substance: SPIRONOLACTONE
     Indication: HYPERTENSION
     Dosage: UNK UNK, UNKNOWN
     Route: 065
     Dates: start: 20150501, end: 20150608
  29. BACITRACIN ZINC. [Concomitant]
     Active Substance: BACITRACIN ZINC
     Indication: SKIN NEOPLASM EXCISION
  30. DILTIAZEM [Concomitant]
     Active Substance: DILTIAZEM
     Dosage: UNK
     Route: 065
     Dates: start: 20150613
  31. MULTIVITAMIN                       /00097801/ [Concomitant]
     Active Substance: VITAMINS
     Indication: VITAMIN SUPPLEMENTATION
     Dosage: UNK UNK, UNKNOWN
     Route: 065
  32. COQ 10 [Concomitant]
     Active Substance: UBIDECARENONE
     Indication: SUPPLEMENTATION THERAPY
     Dosage: UNK UNK, UNKNOWN
     Route: 065
     Dates: start: 201010
  33. CARVEDILOL. [Concomitant]
     Active Substance: CARVEDILOL
     Indication: BENIGN PROSTATIC HYPERPLASIA
     Dosage: UNK UNK, UNKNOWN
     Route: 065
     Dates: start: 20141006, end: 20150727
  34. BACITRACIN ZINC. [Concomitant]
     Active Substance: BACITRACIN ZINC
     Indication: INFECTION PROPHYLAXIS
     Dosage: UNK UNK, UNKNOWN
     Route: 061
     Dates: start: 20150810, end: 20150910
  35. AMIODARONE [Concomitant]
     Active Substance: AMIODARONE
     Indication: DIZZINESS
  36. PREGABALIN. [Concomitant]
     Active Substance: PREGABALIN
     Indication: BACK PAIN
     Dosage: UNK UNK, UNKNOWN
     Route: 065
     Dates: start: 20150618, end: 20151020
  37. CALCIUM [Concomitant]
     Active Substance: CALCIUM
     Indication: SUPPLEMENTATION THERAPY
     Dosage: UNK UNK, UNKNOWN
     Route: 065
     Dates: start: 201010
  38. LISINOPRIL. [Concomitant]
     Active Substance: LISINOPRIL
     Indication: HYPERTENSION
     Dosage: UNK UNK, UNKNOWN
     Route: 065
     Dates: start: 20130222, end: 20150608
  39. MITOMYCIN. [Concomitant]
     Active Substance: MITOMYCIN
     Indication: INFECTION PROPHYLAXIS
     Dosage: UNK UNK, UNKNOWN
     Route: 065
     Dates: start: 20150813, end: 20150813
  40. PREDNISONE (WATSON LABORATORIES) [Suspect]
     Active Substance: PREDNISONE
     Dosage: 5 MG TWICE DAILY
     Route: 048
     Dates: start: 20150824, end: 20151031
  41. MELOXICAM. [Suspect]
     Active Substance: MELOXICAM
     Dosage: 15 MG, AS NEEDED
     Route: 048
     Dates: start: 20150702
  42. LINUM USITATISSIMUM SEED [Concomitant]
     Indication: SUPPLEMENTATION THERAPY
     Dosage: UNK UNK, UNKNOWN
     Route: 065
     Dates: start: 201010
  43. MECLIZINE [Concomitant]
     Active Substance: MECLIZINE HYDROCHLORIDE
     Indication: VERTIGO
     Dosage: UNK UNK, UNKNOWN
     Route: 065
     Dates: start: 20120625, end: 201510
  44. FUROSEMIDE. [Concomitant]
     Active Substance: FUROSEMIDE
     Indication: OEDEMA PERIPHERAL
     Dosage: UNK UNK, UNKNOWN
     Route: 065
     Dates: start: 201503
  45. VITAMIN B12 [Concomitant]
     Active Substance: CYANOCOBALAMIN
     Indication: SUPPLEMENTATION THERAPY
     Dosage: UNK UNK, UNKNOWN
     Route: 065
     Dates: start: 2010

REACTIONS (3)
  - Gastroduodenal haemorrhage [Recovered/Resolved]
  - Shock haemorrhagic [Recovered/Resolved]
  - Iron deficiency anaemia [Recovering/Resolving]

NARRATIVE: CASE EVENT DATE: 20150608
